FAERS Safety Report 10019533 (Version 3)
Quarter: 2014Q2

REPORT INFORMATION
  Report Type: Report from Study
  Country: CH (occurrence: CH)
  Receive Date: 20140318
  Receipt Date: 20140529
  Transmission Date: 20141212
  Serious: Yes (Death, Life-Threatening, Hospitalization)
  Sender: FDA-Public Use
  Company Number: CH-CELGENEUS-151-21880-14020073

PATIENT
  Age: 81 Year
  Sex: Male

DRUGS (4)
  1. REVLIMID [Suspect]
     Indication: B-CELL LYMPHOMA
     Dosage: 10 MILLIGRAM
     Route: 048
     Dates: start: 20140118, end: 20140227
  2. RITUXIMAB [Suspect]
     Indication: B-CELL LYMPHOMA
     Dosage: 675 MILLIGRAM
     Route: 041
     Dates: start: 20140118, end: 20140217
  3. BENDAMUSTINE [Suspect]
     Indication: B-CELL LYMPHOMA
     Dosage: 120 MILLIGRAM
     Route: 041
     Dates: start: 20140118, end: 20140218
  4. RED BLOOD CELLS [Concomitant]
     Indication: PRODUCT USED FOR UNKNOWN INDICATION
     Route: 065
     Dates: start: 20140205, end: 20140205

REACTIONS (4)
  - B-cell lymphoma [Fatal]
  - Pulmonary embolism [Not Recovered/Not Resolved]
  - Abdominal pain [Fatal]
  - Abdominal pain [Recovered/Resolved]
